FAERS Safety Report 8766506 (Version 1)
Quarter: 2012Q4

REPORT INFORMATION
  Report Type: Report from Study
  Country: AU (occurrence: AU)
  Receive Date: 20120905
  Receipt Date: 20120905
  Transmission Date: 20130627
  Serious: Yes (Hospitalization)
  Sender: FDA-Public Use
  Company Number: AU-ROCHE-1112706

PATIENT
  Age: 65 Year
  Sex: Female

DRUGS (4)
  1. HERCEPTIN [Suspect]
     Indication: BREAST CANCER
     Route: 042
     Dates: start: 20080612
  2. PACLITAXEL [Suspect]
     Indication: BREAST CANCER
     Route: 042
     Dates: start: 20080522
  3. DOCETAXEL [Suspect]
     Indication: BREAST CANCER
     Route: 065
     Dates: start: 20080221
  4. CARBOPLATIN [Suspect]
     Indication: BREAST CANCER
     Route: 065
     Dates: start: 20080221

REACTIONS (1)
  - Acute myeloid leukaemia [Not Recovered/Not Resolved]
